FAERS Safety Report 6878856-2 (Version None)
Quarter: 2010Q3

REPORT INFORMATION
  Report Type: 
  Country: None (occurrence: None)
  Receive Date: 20100728
  Receipt Date: 20100719
  Transmission Date: 20110219
  Serious: Yes (Hospitalization)
  Sender: FDA-Public Use
  Company Number: PHHO2008TR15236

PATIENT
  Sex: Female
  Weight: 81 kg

DRUGS (4)
  1. AFINITOR [Suspect]
     Indication: METASTATIC RENAL CELL CARCINOMA
     Dosage: 10 MG, DAILY
     Route: 048
     Dates: start: 20080910
  2. AFINITOR [Suspect]
     Dosage: UNK
     Dates: end: 20081204
  3. AFINITOR [Suspect]
     Dosage: UNK
     Dates: start: 20081212
  4. RADIATION [Suspect]

REACTIONS (5)
  - DYSPHAGIA [None]
  - MUCOSAL INFLAMMATION [None]
  - NAUSEA [None]
  - RADIATION OESOPHAGITIS [None]
  - VOMITING [None]
